FAERS Safety Report 5751610-0 (Version None)
Quarter: 2008Q2

REPORT INFORMATION
  Report Type: 
  Country: None (occurrence: None)
  Receive Date: 20080528
  Receipt Date: 20080520
  Transmission Date: 20081010
  Serious: Yes (Hospitalization, Other)
  Sender: FDA-Public Use
  Company Number: PHHY2008JP02633

PATIENT
  Age: 57 Year
  Sex: Female

DRUGS (1)
  1. VOLTAREN [Suspect]
     Indication: ANTIPYRESIS
     Dosage: UNK, UNK
     Route: 048
     Dates: end: 20080228

REACTIONS (4)
  - BLOOD PRESSURE DECREASED [None]
  - DEHYDRATION [None]
  - PYREXIA [None]
  - SHOCK [None]
